FAERS Safety Report 11779057 (Version 1)
Quarter: 2015Q4

REPORT INFORMATION
  Report Type: Spontaneous
  Country: US (occurrence: None)
  Receive Date: 20151125
  Receipt Date: 20151125
  Transmission Date: 20160304
  Serious: No
  Sender: FDA-Public Use
  Company Number: US-MDT-ADR-2015-02241

PATIENT
  Age: 72 Year
  Sex: Male

DRUGS (1)
  1. BACLOFEN INTRATHECAL (2000 MCG/ML) [Suspect]
     Active Substance: BACLOFEN
     Indication: MOVEMENT DISORDER
     Dosage: 900 MCG/DAY

REACTIONS (4)
  - Depressed level of consciousness [None]
  - Overdose [None]
  - Mental status changes [None]
  - Sedation [None]
